FAERS Safety Report 25324193 (Version 2)
Quarter: 2025Q2

REPORT INFORMATION
  Report Type: Spontaneous
  Country: US (occurrence: US)
  Receive Date: 20250516
  Receipt Date: 20250520
  Transmission Date: 20250717
  Serious: Yes (Death, Life-Threatening, Other)
  Sender: BRACCO
  Company Number: US-BRACCO-2025US02973

PATIENT
  Age: 80 Year
  Sex: Female

DRUGS (9)
  1. LUMASON [Suspect]
     Active Substance: SULFUR HEXAFLUORIDE
     Indication: Echocardiogram
     Route: 042
     Dates: start: 20250508, end: 20250508
  2. LUMASON [Suspect]
     Active Substance: SULFUR HEXAFLUORIDE
     Indication: Echocardiogram
     Route: 042
     Dates: start: 20250508, end: 20250508
  3. LUMASON [Suspect]
     Active Substance: SULFUR HEXAFLUORIDE
     Indication: Echocardiogram
     Route: 042
     Dates: start: 20250508, end: 20250508
  4. ALBUTEROL [Concomitant]
     Active Substance: ALBUTEROL
  5. ATORVASTATIN [Concomitant]
     Active Substance: ATORVASTATIN
  6. BRILINTA [Concomitant]
     Active Substance: TICAGRELOR
  7. HEPARIN [Concomitant]
     Active Substance: HEPARIN SODIUM
  8. LISINOPRIL [Concomitant]
     Active Substance: LISINOPRIL
  9. NITROGLYCERIN [Concomitant]
     Active Substance: NITROGLYCERIN

REACTIONS (1)
  - Cardiac arrest [Fatal]

NARRATIVE: CASE EVENT DATE: 20250508
